FAERS Safety Report 6390524-2 (Version None)
Quarter: 2009Q4

REPORT INFORMATION
  Report Type: 
  Country: None (occurrence: None)
  Receive Date: 20091006
  Receipt Date: 20090922
  Transmission Date: 20100525
  Serious: Yes (Other)
  Sender: FDA-Public Use
  Company Number: GB-PFIZER INC-2009272644

PATIENT

DRUGS (3)
  1. CHAMPIX [Suspect]
     Indication: SMOKING CESSATION THERAPY
  2. PREDNISOLONE AND PREDNISOLONE STEAGLATE [Interacting]
     Indication: LOWER RESPIRATORY TRACT INFECTION
  3. AUGMENTIN [Interacting]
     Indication: LOWER RESPIRATORY TRACT INFECTION

REACTIONS (3)
  - DRUG INEFFECTIVE [None]
  - DRUG INTERACTION [None]
  - LOWER RESPIRATORY TRACT INFECTION [None]
